FAERS Safety Report 21756147 (Version 1)
Quarter: 2022Q4

REPORT INFORMATION
  Report Type: Spontaneous
  Country: US (occurrence: None)
  Receive Date: 20221219
  Receipt Date: 20221219
  Transmission Date: 20230113
  Serious: No
  Sender: FDA-Public Use
  Company Number: None

PATIENT
  Age: 59 Year
  Sex: Female

DRUGS (1)
  1. MEKINIST [Suspect]
     Active Substance: TRAMETINIB DIMETHYL SULFOXIDE
     Indication: Mononeuropathy
     Dosage: FREQUENCY : DAILY;?
     Route: 048
     Dates: start: 20220720

REACTIONS (4)
  - Dyspnoea [None]
  - Chest pain [None]
  - Pulmonary thrombosis [None]
  - Pneumonia [None]

NARRATIVE: CASE EVENT DATE: 20221109
